FAERS Safety Report 4447015-5 (Version None)
Quarter: 2004Q3

REPORT INFORMATION
  Report Type: 
  Country: None (occurrence: None)
  Receive Date: 20040812
  Receipt Date: 20040504
  Transmission Date: 20050211
  Serious: No
  Sender: FDA-Public Use
  Company Number: US_0405102907

PATIENT
  Age: 60 Year
  Sex: Male

DRUGS (2)
  1. CIALIS [Suspect]
     Dosage: 10 MG/1 AS NEEDED
     Dates: start: 20040424, end: 20040424
  2. NORVASC [Concomitant]

REACTIONS (2)
  - MYALGIA [None]
  - PAIN [None]
